FAERS Safety Report 8051456-7 (Version None)
Quarter: 2012Q1

REPORT INFORMATION
  Report Type: 
  Country: None (occurrence: None)
  Receive Date: 20120117
  Receipt Date: 20120111
  Transmission Date: 20120608
  Serious: Yes (Life-Threatening)
  Sender: FDA-Public Use
  Company Number: FR-ASTRAZENECA-2012SE02361

PATIENT
  Age: 21978 Day
  Sex: Male

DRUGS (6)
  1. ROCURONIUM BROMIDE [Suspect]
     Route: 042
     Dates: start: 20100906
  2. CLINDAMYCIN HCL [Suspect]
     Route: 042
     Dates: start: 20100906
  3. SOLU-MEDROL [Suspect]
     Route: 042
     Dates: start: 20100906
  4. DIPRIVAN [Suspect]
     Route: 042
     Dates: start: 20100906
  5. SUFENTA PRESERVATIVE FREE [Suspect]
     Route: 042
     Dates: start: 20100906
  6. KETAMINE HCL [Suspect]
     Route: 042
     Dates: start: 20100906

REACTIONS (1)
  - ANAPHYLACTIC SHOCK [None]
